FAERS Safety Report 6123717-X (Version None)
Quarter: 2009Q1

REPORT INFORMATION
  Report Type: 
  Country: None (occurrence: None)
  Receive Date: 20090318
  Receipt Date: 20090318
  Transmission Date: 20090719
  Serious: Yes (Hospitalization)
  Sender: FDA-Public Use
  Company Number: None

PATIENT
  Age: 42 Year
  Sex: Male
  Weight: 70.45 kg

DRUGS (1)
  1. HALOPERIDOL [Suspect]
     Dosage: 2 MG BID PO
     Route: 048
     Dates: start: 20080519, end: 20080519

REACTIONS (3)
  - INTENTION TREMOR [None]
  - JOINT STIFFNESS [None]
  - SPEECH DISORDER [None]
